FAERS Safety Report 5673477-1 (Version None)
Quarter: 2008Q2

REPORT INFORMATION
  Report Type: 
  Country: None (occurrence: None)
  Receive Date: 20080222
  Receipt Date: 20071211
  Transmission Date: 20081010
  Serious: No
  Sender: FDA-Public Use
  Company Number: 2007SP024759

PATIENT
  Sex: Male

DRUGS (5)
  1. NOXAFIL [Suspect]
     Indication: ASPERGILLOSIS
     Dosage: PO
     Route: 048
  2. VORICONAZOLE [Concomitant]
  3. LIPITOR [Concomitant]
  4. CRESTOR [Concomitant]
  5. COUMADIN [Concomitant]

REACTIONS (1)
  - LIVER FUNCTION TEST ABNORMAL [None]
